FAERS Safety Report 9458788 (Version 1)
Quarter: 2013Q3

REPORT INFORMATION
  Report Type: Spontaneous
  Country: US (occurrence: US)
  Receive Date: 20130814
  Receipt Date: 20130814
  Transmission Date: 20140515
  Serious: Yes (Other)
  Sender: FDA-Public Use
  Company Number: US-BRISTOL-MYERS SQUIBB COMPANY-19162825

PATIENT
  Age: 8 Year
  Sex: Male
  Weight: 26.3 kg

DRUGS (1)
  1. ABILIFY [Suspect]
     Dates: start: 201211

REACTIONS (6)
  - Pneumonia [Unknown]
  - Influenza [Unknown]
  - Scarlet fever [Unknown]
  - Dyspnoea [Unknown]
  - Ear infection [Unknown]
  - Clostridium test positive [Unknown]
